FAERS Safety Report 20571894 (Version 3)
Quarter: 2022Q4

REPORT INFORMATION
  Report Type: Spontaneous
  Country: JP (occurrence: JP)
  Receive Date: 20220309
  Receipt Date: 20221206
  Transmission Date: 20230113
  Serious: No
  Sender: FDA-Public Use
  Company Number: JP-GLAXOSMITHKLINE-JP2022JPN040599

PATIENT

DRUGS (3)
  1. SOTROVIMAB [Suspect]
     Active Substance: SOTROVIMAB
     Indication: COVID-19
     Dosage: 500 MG/DAY
     Route: 041
     Dates: start: 20220228, end: 20220228
  2. FERROUS CITRATE [Suspect]
     Active Substance: FERROUS CITRATE
     Dosage: 100 MG/DAY
     Route: 048
  3. TERBINAFINE HYDROCHLORIDE [Suspect]
     Active Substance: TERBINAFINE HYDROCHLORIDE
     Dosage: ONCE TO TWICE DAILY
     Route: 003

REACTIONS (2)
  - Exposure during pregnancy [Unknown]
  - Live birth [Unknown]
